FAERS Safety Report 23074352 (Version 1)
Quarter: 2023Q4

REPORT INFORMATION
  Report Type: Other
  Country: None (occurrence: US)
  Receive Date: 20231017
  Receipt Date: 20231017
  Transmission Date: 20240109
  Serious: Yes (Hospitalization)
  Sender: FDA-Public Use
  Company Number: US-WES Pharma Inc-2147167

PATIENT
  Age: 58 Year
  Sex: Female

DRUGS (2)
  1. BUPRENORPHINE\NALOXONE [Suspect]
     Active Substance: BUPRENORPHINE\NALOXONE
     Indication: Product used for unknown indication
     Route: 065
  2. FENTANYL [Concomitant]
     Active Substance: FENTANYL
     Route: 042

REACTIONS (7)
  - Tachycardia [Recovering/Resolving]
  - Agitation [Recovering/Resolving]
  - Hyperhidrosis [Recovering/Resolving]
  - Tachypnoea [Recovering/Resolving]
  - Abdominal pain [Recovering/Resolving]
  - Myalgia [Recovering/Resolving]
  - Drug withdrawal syndrome [Recovering/Resolving]
